FAERS Safety Report 5430059-4 (Version None)
Quarter: 2007Q3

REPORT INFORMATION
  Report Type: 
  Country: None (occurrence: None)
  Receive Date: 20070829
  Receipt Date: 20070817
  Transmission Date: 20080115
  Serious: Yes (Other)
  Sender: FDA-Public Use
  Company Number: US-PFIZER INC-2007069292

PATIENT
  Sex: Female
  Weight: 65.3 kg

DRUGS (5)
  1. CHANTIX [Suspect]
     Route: 048
  2. XANAX [Concomitant]
     Route: 048
  3. VALIUM [Concomitant]
     Route: 048
  4. TRAZODONE HCL [Concomitant]
     Route: 048
  5. LASIX [Concomitant]
     Route: 048

REACTIONS (9)
  - AGITATION [None]
  - ANOREXIA [None]
  - CRYING [None]
  - IRRITABILITY [None]
  - MALAISE [None]
  - NAUSEA [None]
  - PNEUMONIA [None]
  - RENAL DISORDER [None]
  - UNDERDOSE [None]
